FAERS Safety Report 7294362-8 (Version None)
Quarter: 2011Q1

REPORT INFORMATION
  Report Type: 
  Country: None (occurrence: None)
  Receive Date: 20110215
  Receipt Date: 20110204
  Transmission Date: 20110831
  Serious: Yes (Hospitalization, Other)
  Sender: FDA-Public Use
  Company Number: AR-AMGEN-ARGSP2011008123

PATIENT
  Age: 78 Year
  Sex: Male
  Weight: 54 kg

DRUGS (4)
  1. LIPITOR [Concomitant]
     Dosage: UNK
  2. VALSARTAN [Concomitant]
     Dosage: UNK
  3. ENBREL [Suspect]
     Indication: RHEUMATOID ARTHRITIS
     Dosage: 50 MG, WEEKLY
     Route: 058
     Dates: start: 20090201
  4. CORTISONE [Concomitant]
     Dosage: UNK

REACTIONS (5)
  - NECROSIS [None]
  - DIZZINESS [None]
  - HEAD INJURY [None]
  - BLOOD SODIUM DECREASED [None]
  - FALL [None]
